FAERS Safety Report 9504409 (Version 2)
Quarter: 2013Q4

REPORT INFORMATION
  Report Type: Spontaneous
  Country: IT (occurrence: IT)
  Receive Date: 20130906
  Receipt Date: 20131107
  Transmission Date: 20140711
  Serious: Yes (Hospitalization)
  Sender: FDA-Public Use
  Company Number: IT-BRISTOL-MYERS SQUIBB COMPANY-19266493

PATIENT
  Age: 86 Year
  Sex: Female

DRUGS (4)
  1. COUMADIN TABS 5 MG [Suspect]
     Indication: ATRIAL FIBRILLATION
     Dosage: 1 DF : 1 UNIT
     Route: 048
     Dates: start: 20110823, end: 20130823
  2. CARVEDILOL [Concomitant]
  3. LANOXIN [Concomitant]
     Dosage: 1 DF : 1 UNIT
     Route: 048
  4. KCL RETARD [Concomitant]
     Dosage: TAB
     Route: 048

REACTIONS (1)
  - Duodenal ulcer [Recovering/Resolving]
